FAERS Safety Report 4472979-3 (Version None)
Quarter: 2004Q4

REPORT INFORMATION
  Report Type: 
  Country: None (occurrence: None)
  Receive Date: 20041012
  Receipt Date: 20041012
  Transmission Date: 20050328
  Serious: Yes (Other)
  Sender: FDA-Public Use
  Company Number: None

PATIENT
  Sex: Male
  Weight: 106.5953 kg

DRUGS (9)
  1. HYDROCODONE/APAP 10/500 WATSON [Suspect]
     Indication: BACK PAIN
     Dosage: 1 BY MOUTH DAILY
     Route: 048
     Dates: start: 20040918, end: 20040924
  2. AMBIEN [Concomitant]
  3. XANAX [Concomitant]
  4. PAXIL [Concomitant]
  5. HYDROCHLOROTHIAZIDE [Concomitant]
  6. ZOCOR [Concomitant]
  7. NAPROXEN [Concomitant]
  8. LOTREL [Concomitant]
  9. PRILOSEC [Concomitant]

REACTIONS (2)
  - DRUG INEFFECTIVE [None]
  - PHARMACEUTICAL PRODUCT COMPLAINT [None]
